FAERS Safety Report 8276626-4 (Version None)
Quarter: 2012Q2

REPORT INFORMATION
  Report Type: 
  Country: None (occurrence: None)
  Receive Date: 20120412
  Receipt Date: 20120409
  Transmission Date: 20120825
  Serious: Yes (Other)
  Sender: FDA-Public Use
  Company Number: PHEH2012US005224

PATIENT
  Sex: Female
  Weight: 60 kg

DRUGS (8)
  1. DIOVAN [Suspect]
     Indication: HYPERTENSION
     Dosage: 160 MG, DAILY
     Route: 048
     Dates: start: 20110101
  2. HYDROCHLOROTHIAZIDE [Suspect]
     Indication: HYPERTENSION
     Route: 048
  3. CLONIDINE [Concomitant]
     Dosage: 0.1 UKN, UNK
  4. PLAVIX [Concomitant]
     Dosage: 75 MG, UNK
     Route: 048
  5. METFORMIN HCL [Concomitant]
     Dosage: 1000 UKN, UNK
  6. COREG [Concomitant]
     Dosage: 12.5 UKN, UNK
     Route: 048
  7. CYMBALTA [Concomitant]
     Route: 048
  8. GLUCOTROL XL [Concomitant]
     Dosage: 10 MG, UNK
     Route: 048

REACTIONS (4)
  - TRANSIENT ISCHAEMIC ATTACK [None]
  - CEREBROVASCULAR ACCIDENT [None]
  - BLOOD PRESSURE DECREASED [None]
  - HYPONATRAEMIA [None]
